FAERS Safety Report 24969646 (Version 1)
Quarter: 2025Q1

REPORT INFORMATION
  Report Type: Report from Study
  Country: US (occurrence: US)
  Receive Date: 20250214
  Receipt Date: 20250214
  Transmission Date: 20250409
  Serious: Yes (Other)
  Sender: EXELIXIS
  Company Number: US-EXELIXIS-EXL-2024-003071

PATIENT
  Sex: Male

DRUGS (11)
  1. CABOMETYX [Suspect]
     Active Substance: CABOZANTINIB S-MALATE
     Indication: Hepatocellular carcinoma
     Dates: start: 20241118
  2. CABOMETYX [Suspect]
     Active Substance: CABOZANTINIB S-MALATE
     Dosage: 20 MG, QOD
     Dates: start: 202411
  3. RIFAXIMIN [Concomitant]
     Active Substance: RIFAXIMIN
  4. LEVOTHYROXINE [Concomitant]
     Active Substance: LEVOTHYROXINE
  5. PROPRANOLOL [Concomitant]
     Active Substance: PROPRANOLOL HYDROCHLORIDE
  6. SPIRONOLACTONE [Concomitant]
     Active Substance: SPIRONOLACTONE
  7. OMEPRAZOLE [Concomitant]
     Active Substance: OMEPRAZOLE
  8. FUROSEMIDE [Concomitant]
     Active Substance: FUROSEMIDE
  9. VITAMINS [Concomitant]
     Active Substance: VITAMINS
  10. GABAPENTIN [Concomitant]
     Active Substance: GABAPENTIN
  11. LACTULOSE [Concomitant]
     Active Substance: LACTULOSE

REACTIONS (11)
  - Liver injury [Unknown]
  - Dermatitis allergic [Unknown]
  - Blood pressure increased [Recovering/Resolving]
  - Blood potassium decreased [Unknown]
  - Muscle spasms [Unknown]
  - Pruritus [Unknown]
  - Drug ineffective [Unknown]
  - Hypoaesthesia [Unknown]
  - Muscular weakness [Recovering/Resolving]
  - Blood sodium decreased [Unknown]
  - Off label use [Unknown]
